FAERS Safety Report 15892016 (Version 1)
Quarter: 2019Q1

REPORT INFORMATION
  Report Type: Spontaneous
  Country: DE (occurrence: DE)
  Receive Date: 20190130
  Receipt Date: 20190130
  Transmission Date: 20190417
  Serious: No
  Sender: FDA-Public Use
  Company Number: DE-IPSEN-CABO-17011755

PATIENT
  Sex: Female
  Weight: 72 kg

DRUGS (4)
  1. CABOMETYX [Suspect]
     Active Substance: CABOZANTINIB S-MALATE
     Indication: METASTATIC NEOPLASM
  2. CABOMETYX [Suspect]
     Active Substance: CABOZANTINIB S-MALATE
     Indication: METASTASES TO CENTRAL NERVOUS SYSTEM
     Dosage: 40 MG, QD
     Route: 048
     Dates: start: 20170912
  3. CABOMETYX [Suspect]
     Active Substance: CABOZANTINIB S-MALATE
     Indication: METASTASES TO BONE
     Dosage: 60 MG, QD
     Route: 048
     Dates: start: 20171208, end: 20171221
  4. CABOMETYX [Suspect]
     Active Substance: CABOZANTINIB S-MALATE
     Indication: METASTASES TO LIVER
     Dosage: 20 MG, QD
     Route: 048

REACTIONS (15)
  - Nasal dryness [Unknown]
  - Blood pressure increased [Unknown]
  - Gastrointestinal tract irritation [Unknown]
  - Nausea [Recovered/Resolved]
  - Sluggishness [Unknown]
  - Pain [Unknown]
  - Head discomfort [Recovered/Resolved]
  - Skin disorder [Unknown]
  - Off label use [Unknown]
  - Vulvovaginal discomfort [Unknown]
  - Pain in extremity [Unknown]
  - Dry eye [Unknown]
  - Asthenia [Recovered/Resolved]
  - Oropharyngeal pain [Unknown]
  - Bowel movement irregularity [Unknown]

NARRATIVE: CASE EVENT DATE: 20171218
